FAERS Safety Report 25771573 (Version 1)
Quarter: 2025Q3

REPORT INFORMATION
  Report Type: Spontaneous
  Country: CN (occurrence: CN)
  Receive Date: 20250908
  Receipt Date: 20250908
  Transmission Date: 20251020
  Serious: Yes (Hospitalization, Other)
  Sender: MICRO LABS
  Company Number: CN-862174955-ML2025-04399

PATIENT
  Age: 51 Year
  Sex: Female

DRUGS (2)
  1. LEVOFLOXACIN [Suspect]
     Active Substance: LEVOFLOXACIN
     Indication: Diabetic foot
     Route: 042
  2. DEXAMETHASONE [Suspect]
     Active Substance: DEXAMETHASONE
     Indication: Diabetic foot
     Route: 042

REACTIONS (1)
  - Generalised pustular psoriasis [Recovered/Resolved]
